FAERS Safety Report 23286236 (Version 1)
Quarter: 2023Q4

REPORT INFORMATION
  Report Type: Spontaneous
  Country: DE (occurrence: DE)
  Receive Date: 20231212
  Receipt Date: 20231212
  Transmission Date: 20240109
  Serious: Yes (Congenital Anomaly, Other)
  Sender: FDA-Public Use
  Company Number: DE-OPELLA-2023OHG017925

PATIENT
  Sex: Male
  Weight: 2.87 kg

DRUGS (3)
  1. LEVOCETIRIZINE [Suspect]
     Active Substance: LEVOCETIRIZINE
     Indication: Hypersensitivity
     Dosage: UNK; (10 [MG/D ]/ 5-10 MG/D)
     Route: 064
     Dates: start: 20220908, end: 20230526
  2. PFIZER-BIONTECH COVID-19 VACCINE [Concomitant]
     Active Substance: TOZINAMERAN
     Indication: Immunisation
     Dosage: UNK
     Route: 065
     Dates: start: 20230301, end: 20230301
  3. BOOSTRIX POLIO [Concomitant]
     Active Substance: DIPHTHERIA AND TETANUS TOXOIDS AND ACELLULAR PERTUSSIS ADSORBED AND INACTIVATED POLIOVIRUS VACCINE
     Indication: Immunisation
     Dosage: UNK
     Route: 065
     Dates: start: 20230324, end: 20230324

REACTIONS (2)
  - Syndactyly [Unknown]
  - Maternal exposure during pregnancy [Unknown]

NARRATIVE: CASE EVENT DATE: 20220908
